FAERS Safety Report 13197817 (Version 2)
Quarter: 2017Q1

REPORT INFORMATION
  Report Type: Spontaneous
  Country: US (occurrence: US)
  Receive Date: 20170208
  Receipt Date: 20170228
  Transmission Date: 20170428
  Serious: Yes (Hospitalization)
  Sender: FDA-Public Use
  Company Number: US-PFIZER INC-2017051010

PATIENT
  Age: 65 Year
  Sex: Male
  Weight: 88.44 kg

DRUGS (2)
  1. CAVERJECT [Suspect]
     Active Substance: ALPROSTADIL
     Dosage: UNK (USE IT ONE TIME)
     Dates: start: 201609, end: 201609
  2. VIAGRA [Suspect]
     Active Substance: SILDENAFIL CITRATE
     Dosage: 100 MG, UNK
     Dates: end: 201611

REACTIONS (2)
  - Body height decreased [Not Recovered/Not Resolved]
  - Herpes zoster [Not Recovered/Not Resolved]
